FAERS Safety Report 9593916 (Version 1)
Quarter: 2013Q3

REPORT INFORMATION
  Report Type: Spontaneous
  Country: US (occurrence: None)
  Receive Date: 20130930
  Receipt Date: 20130930
  Transmission Date: 20140515
  Serious: No
  Sender: FDA-Public Use
  Company Number: 1000048143

PATIENT
  Age: 86 Year
  Sex: Female

DRUGS (7)
  1. LINZESS [Suspect]
     Indication: CONSTIPATION
     Dosage: 290 MCG (290 MCG, 1 IN 1 D)
     Dates: start: 20130823
  2. FISH OIL (FISH OIL) (FISH OIL) [Concomitant]
  3. VITAMIN B-10 (VITAMIN B-10) (VITAMIN B-10) [Concomitant]
  4. ATORVASTATIN (ATORVASTATIN) (ATORVASTATIN) [Concomitant]
  5. CALTRATE WITH VITAMIN D (LEKOVIT CA) (LEKOVIT CA) [Concomitant]
  6. BABY ASPIRIN (ACETYLSALICYLIC ACID) (ACETYLSALICYLIC ACID)? [Concomitant]
  7. OXYBUTYNIN (OXYBUTYNIN) (OXYBUTYNIN) [Concomitant]

REACTIONS (1)
  - Diarrhoea [None]
